FAERS Safety Report 7685263-1 (Version None)
Quarter: 2011Q3

REPORT INFORMATION
  Report Type: 
  Country: None (occurrence: None)
  Receive Date: 20110816
  Receipt Date: 20110810
  Transmission Date: 20111222
  Serious: Yes (Death)
  Sender: FDA-Public Use
  Company Number: US-GILEAD-2011-0042628

PATIENT
  Sex: Male
  Weight: 75.364 kg

DRUGS (1)
  1. LETAIRIS [Suspect]
     Indication: PRODUCT USED FOR UNKNOWN INDICATION
     Route: 048
     Dates: start: 20110301, end: 20110720

REACTIONS (2)
  - ONCOLOGIC COMPLICATION [None]
  - LUNG NEOPLASM MALIGNANT [None]
